FAERS Safety Report 6341413-0 (Version None)
Quarter: 2009Q3

REPORT INFORMATION
  Report Type: 
  Country: None (occurrence: None)
  Receive Date: 20090904
  Receipt Date: 20090827
  Transmission Date: 20100115
  Serious: Yes (Other)
  Sender: FDA-Public Use
  Company Number: FR-ELI_LILLY_AND_COMPANY-FR200905003373

PATIENT
  Sex: Male
  Weight: 53.2 kg

DRUGS (12)
  1. ZYPREXA [Suspect]
     Indication: ABNORMAL BEHAVIOUR
     Dosage: 20 MG, DAILY (1/D)
     Route: 048
     Dates: start: 20090428
  2. DEROXAT [Concomitant]
     Indication: DEPRESSION
     Dosage: 20 MG, DAILY (1/D)
     Route: 048
     Dates: start: 20090212
  3. TERCIAN [Concomitant]
     Indication: SEDATION
     Dosage: 225 D/F, DAILY (1/D)
     Route: 048
     Dates: start: 20090309
  4. DEPAKOTE [Concomitant]
     Indication: DYSTHYMIC DISORDER
     Dosage: 150 MG, DAILY (1/D)
     Route: 048
     Dates: start: 20090428
  5. DIANTALVIC [Concomitant]
     Indication: PAIN
     Dosage: 6 D/F, DAILY (1/D)
     Route: 048
     Dates: start: 20090107, end: 20090514
  6. NOVOMIX30 [Concomitant]
     Indication: DIABETES MELLITUS
     Dosage: 20 IU, DAILY (1/D)
     Route: 058
  7. NOVOMIX30 [Concomitant]
     Dosage: 24 IU, DAILY (1/D)
     Route: 058
     Dates: end: 20090508
  8. LEVEMIR [Concomitant]
     Indication: DIABETES MELLITUS
     Dosage: 8 IU, DAILY (1/D)
     Dates: start: 20090508
  9. RIVOTRIL [Concomitant]
     Indication: ANXIETY
     Dosage: 15 D/F, DAILY (1/D)
     Route: 048
     Dates: start: 20090409
  10. HEPT-A-MYL [Concomitant]
     Dosage: 90 D/F, DAILY (1/D)
     Route: 048
  11. LEPTICUR [Concomitant]
     Dosage: 10 MG, DAILY (1/D)
     Route: 048
  12. LANSOYL [Concomitant]
     Route: 048

REACTIONS (3)
  - ALTERED STATE OF CONSCIOUSNESS [None]
  - HYPOGLYCAEMIA [None]
  - OFF LABEL USE [None]
